FAERS Safety Report 8537243-1 (Version None)
Quarter: 2012Q3

REPORT INFORMATION
  Report Type: 
  Country: None (occurrence: None)
  Receive Date: 20120725
  Receipt Date: 20120723
  Transmission Date: 20120928
  Serious: No
  Sender: FDA-Public Use
  Company Number: US-PFIZER INC-2012178820

PATIENT

DRUGS (1)
  1. CHANTIX [Suspect]

REACTIONS (1)
  - NAUSEA [None]
